FAERS Safety Report 4863420-7 (Version None)
Quarter: 2005Q4

REPORT INFORMATION
  Report Type: 
  Country: None (occurrence: None)
  Receive Date: 20051222
  Receipt Date: 20041229
  Transmission Date: 20060501
  Serious: No
  Sender: FDA-Public Use
  Company Number: US-GLAXOSMITHKLINE-A0538814A

PATIENT
  Age: 34 Year
  Sex: Male

DRUGS (3)
  1. FLONASE [Suspect]
     Route: 045
     Dates: start: 20050101, end: 20050101
  2. PRILOSEC [Concomitant]
  3. ALLEGRA [Concomitant]

REACTIONS (10)
  - DIZZINESS [None]
  - DYSGEUSIA [None]
  - EAR PAIN [None]
  - EPISTAXIS [None]
  - HEADACHE [None]
  - MUCOUS MEMBRANE DISORDER [None]
  - PHARYNGOLARYNGEAL PAIN [None]
  - PYREXIA [None]
  - SINUS DISORDER [None]
  - SINUSITIS [None]
